FAERS Safety Report 12273082 (Version 4)
Quarter: 2016Q4

REPORT INFORMATION
  Report Type: Other
  Country: PT (occurrence: PT)
  Receive Date: 20160415
  Receipt Date: 20161103
  Transmission Date: 20170207
  Serious: Yes (Other)
  Sender: FDA-Public Use
  Company Number: PT-ASTELLAS-2016US014193

PATIENT
  Age: 72 Year
  Sex: Male

DRUGS (6)
  1. TARCEVA [Suspect]
     Active Substance: ERLOTINIB HYDROCHLORIDE
     Indication: LUNG NEOPLASM
  2. BONEFOS [Concomitant]
     Active Substance: CLODRONATE DISODIUM
     Indication: METASTASES TO BONE
     Route: 065
     Dates: start: 20160210
  3. FLUIMUCIL A [Concomitant]
     Indication: PRODUCTIVE COUGH
     Route: 065
     Dates: start: 201501
  4. EPSICAPROM [Concomitant]
     Indication: HAEMOPTYSIS
     Route: 065
     Dates: start: 201501
  5. TARCEVA [Suspect]
     Active Substance: ERLOTINIB HYDROCHLORIDE
     Indication: SQUAMOUS CELL CARCINOMA
     Route: 048
     Dates: start: 20160225, end: 2016
  6. METFORMIN [Concomitant]
     Active Substance: METFORMIN HYDROCHLORIDE
     Indication: TYPE 2 DIABETES MELLITUS
     Route: 065
     Dates: start: 201501

REACTIONS (4)
  - Eye inflammation [Recovered/Resolved]
  - Eye disorder [Recovered/Resolved]
  - Skin lesion [Unknown]
  - Ulcerative keratitis [Recovered/Resolved]

NARRATIVE: CASE EVENT DATE: 20160322
